FAERS Safety Report 6892984-7 (Version None)
Quarter: 2010Q3

REPORT INFORMATION
  Report Type: 
  Country: None (occurrence: None)
  Receive Date: 20100731
  Receipt Date: 20081215
  Transmission Date: 20110219
  Serious: No
  Sender: FDA-Public Use
  Company Number: US-PFIZER INC-2008155961

PATIENT
  Sex: Female
  Weight: 66.7 kg

DRUGS (2)
  1. NEURONTIN [Suspect]
     Indication: BACK PAIN
     Dosage: 300 MG, 3X/DAY
     Route: 048
     Dates: start: 20081111
  2. SYNTHROID [Concomitant]
     Dosage: UNK

REACTIONS (1)
  - URINE CANNABINOIDS INCREASED [None]
